FAERS Safety Report 13101427 (Version 1)
Quarter: 2017Q1

REPORT INFORMATION
  Report Type: Spontaneous
  Country: US (occurrence: US)
  Receive Date: 20170110
  Receipt Date: 20170110
  Transmission Date: 20170428
  Serious: Yes (Disabling, Other)
  Sender: FDA-Public Use
  Company Number: None

PATIENT
  Age: 38 Year
  Sex: Female
  Weight: 49.5 kg

DRUGS (11)
  1. SUPPLEMENTS [Concomitant]
     Active Substance: UNSPECIFIED INGREDIENT
  2. OMEGA 3 [Concomitant]
     Active Substance: OMEGA-3 FATTY ACIDS
  3. MAGNESIUM THREONATE [Concomitant]
  4. CBD OIL [Concomitant]
     Active Substance: CANNABIDIOL
  5. LEVOFLAXCIN [Suspect]
     Active Substance: LEVOFLOXACIN
     Indication: SINUSITIS
     Dosage: ?          QUANTITY:1 CAPSULE(S);?
     Route: 048
     Dates: start: 20160410, end: 20160424
  6. BERBERINE [Concomitant]
     Active Substance: BERBERINE
  7. LEVOCETERIZINE [Concomitant]
  8. VITAMINS/MINERALS [Concomitant]
  9. METHYL B COMPLEX [Concomitant]
  10. PROBIOTICS [Concomitant]
     Active Substance: PROBIOTICS NOS
  11. MITOCORE [Concomitant]

REACTIONS (18)
  - Fatigue [None]
  - Muscle atrophy [None]
  - Swelling [None]
  - Skin disorder [None]
  - Exercise lack of [None]
  - Memory impairment [None]
  - Abasia [None]
  - Anxiety [None]
  - Depression [None]
  - Photosensitivity reaction [None]
  - Temperature intolerance [None]
  - Tendon disorder [None]
  - Tendon pain [None]
  - Burning sensation [None]
  - Crying [None]
  - Pain [None]
  - Abdominal discomfort [None]
  - Alopecia [None]

NARRATIVE: CASE EVENT DATE: 20160418
